FAERS Safety Report 21052895 (Version 2)
Quarter: 2022Q3

REPORT INFORMATION
  Report Type: Report from Study
  Country: IL (occurrence: IL)
  Receive Date: 20220707
  Receipt Date: 20220708
  Transmission Date: 20221027
  Serious: Yes (Hospitalization, Other)
  Sender: FDA-Public Use
  Company Number: IL-NOVARTISPH-NVSC2021IL278792

PATIENT
  Age: 65 Year
  Sex: Female

DRUGS (1)
  1. KISQALI [Suspect]
     Active Substance: RIBOCICLIB
     Indication: Product used for unknown indication
     Dosage: 600 MG, QD
     Route: 048
     Dates: start: 20211128, end: 20220509

REACTIONS (16)
  - Hepatic enzyme increased [Not Recovered/Not Resolved]
  - Jaundice [Unknown]
  - Biliary obstruction [Recovering/Resolving]
  - Metastases to liver [Unknown]
  - Metastases to biliary tract [Unknown]
  - Hot flush [Not Recovered/Not Resolved]
  - Paraesthesia oral [Recovered/Resolved]
  - Discomfort [Recovered/Resolved]
  - Insomnia [Not Recovered/Not Resolved]
  - Tumour marker increased [Unknown]
  - White blood cell count decreased [Not Recovered/Not Resolved]
  - Neutrophil count decreased [Not Recovered/Not Resolved]
  - Nausea [Recovered/Resolved]
  - Asthenia [Not Recovered/Not Resolved]
  - Fatigue [Not Recovered/Not Resolved]
  - Alopecia [Not Recovered/Not Resolved]

NARRATIVE: CASE EVENT DATE: 20211211
